FAERS Safety Report 9969584 (Version 2)
Quarter: 2014Q2

REPORT INFORMATION
  Report Type: Spontaneous
  Country: US (occurrence: US)
  Receive Date: 20140306
  Receipt Date: 20140422
  Transmission Date: 20141212
  Serious: Yes (Other)
  Sender: FDA-Public Use
  Company Number: US-BRISTOL-MYERS SQUIBB COMPANY-20348686

PATIENT
  Age: 57 Year
  Sex: Male
  Weight: 115.19 kg

DRUGS (11)
  1. BYETTA [Suspect]
     Dates: start: 20091027, end: 20120424
  2. JANUVIA [Suspect]
     Dates: start: 20081230, end: 20090330
  3. VICTOZA [Suspect]
     Dates: start: 20120426, end: 20130926
  4. INSULIN DETEMIR [Concomitant]
  5. PIOGLITAZONE HCL [Concomitant]
  6. METFORMIN HCL [Concomitant]
  7. GLIPIZIDE [Concomitant]
  8. GEMFIBROZIL [Concomitant]
  9. SIMVASTATIN [Concomitant]
  10. LISINOPRIL [Concomitant]
  11. VENLAFAXINE HCL [Concomitant]

REACTIONS (1)
  - Pancreatic carcinoma [Unknown]
